FAERS Safety Report 6142720-7 (Version None)
Quarter: 2009Q2

REPORT INFORMATION
  Report Type: 
  Country: None (occurrence: None)
  Receive Date: 20090403
  Receipt Date: 20090324
  Transmission Date: 20091009
  Serious: Yes (Other)
  Sender: FDA-Public Use
  Company Number: US-AMGEN-KDL330107

PATIENT
  Sex: Female
  Weight: 61.3 kg

DRUGS (7)
  1. ENBREL [Suspect]
     Indication: RHEUMATOID ARTHRITIS
     Route: 058
     Dates: start: 20050103
  2. IMURAN [Concomitant]
     Route: 048
  3. MOBIC [Concomitant]
     Route: 048
  4. FOLIC ACID [Concomitant]
     Route: 048
  5. CALCIUM WITH VITAMIN D [Concomitant]
     Route: 048
  6. CLIMARA [Concomitant]
     Route: 062
  7. AMITRIPTYLINE HCL [Concomitant]

REACTIONS (10)
  - CHEST PAIN [None]
  - DYSAESTHESIA [None]
  - FATIGUE [None]
  - HERPES ZOSTER [None]
  - IRRITABILITY [None]
  - MENTAL DISORDER DUE TO A GENERAL MEDICAL CONDITION [None]
  - NAUSEA [None]
  - NEUROTRANSMITTER LEVEL ALTERED [None]
  - SPINAL OSTEOARTHRITIS [None]
  - WEIGHT DECREASED [None]
